FAERS Safety Report 17588621 (Version 1)
Quarter: 2020Q1

REPORT INFORMATION
  Report Type: Report from Study
  Country: None (occurrence: RU)
  Receive Date: 20200327
  Receipt Date: 20200327
  Transmission Date: 20200409
  Serious: Yes (Death, Other)
  Sender: FDA-Public Use
  Company Number: RU-ABBVIE-20K-251-3316528-00

PATIENT

DRUGS (3)
  1. IBRUTINIB [Suspect]
     Active Substance: IBRUTINIB
     Indication: CHRONIC LYMPHOCYTIC LEUKAEMIA
     Route: 048
  2. RITUXIMAB. [Suspect]
     Active Substance: RITUXIMAB
     Indication: CHRONIC LYMPHOCYTIC LEUKAEMIA
     Route: 065
  3. OBINUTUZUMAB. [Suspect]
     Active Substance: OBINUTUZUMAB
     Indication: CHRONIC LYMPHOCYTIC LEUKAEMIA
     Route: 065

REACTIONS (56)
  - Septic shock [Fatal]
  - Oesophageal candidiasis [Unknown]
  - Otitis media [Unknown]
  - Herpes simplex [Unknown]
  - Colitis [Unknown]
  - Respiratory tract infection viral [Unknown]
  - Fungal skin infection [Unknown]
  - Tonsillitis [Unknown]
  - Pulmonary embolism [Fatal]
  - Infection [Fatal]
  - Fungal infection [Unknown]
  - Tracheitis [Unknown]
  - Clostridium difficile colitis [Unknown]
  - Iridocyclitis [Unknown]
  - Sialoadenitis [Unknown]
  - Pharyngitis [Unknown]
  - Gingivitis [Unknown]
  - Hangnail [Unknown]
  - Hepatitis B [Fatal]
  - Viral infection [Unknown]
  - Sinusitis [Unknown]
  - Prostatitis [Unknown]
  - Death [Fatal]
  - Pneumonia [Fatal]
  - Bacterial infection [Unknown]
  - Cellulitis [Unknown]
  - Febrile neutropenia [Unknown]
  - Balanoposthitis [Unknown]
  - Paronychia [Unknown]
  - Hepatitis A [Unknown]
  - Cholecystitis acute [Unknown]
  - Pneumonia [Unknown]
  - Cystitis [Unknown]
  - Pyoderma [Unknown]
  - Lymphadenitis [Unknown]
  - Hepatitis B reactivation [Unknown]
  - Rotavirus infection [Unknown]
  - Influenza [Unknown]
  - Rhinitis [Unknown]
  - Neoplasm [Fatal]
  - Uveitis [Unknown]
  - Pyelonephritis [Unknown]
  - Pyrexia [Unknown]
  - Conjunctivitis [Unknown]
  - Oropharyngeal candidiasis [Unknown]
  - Acute coronary syndrome [Fatal]
  - Enterocolitis [Unknown]
  - Pulmonary tuberculosis [Unknown]
  - Hepatosplenic candidiasis [Unknown]
  - Erysipelas [Unknown]
  - Richter^s syndrome [Fatal]
  - Bronchopulmonary aspergillosis [Unknown]
  - Peritonsillar abscess [Unknown]
  - Mucosal inflammation [Unknown]
  - Herpes zoster [Unknown]
  - Bursitis [Unknown]
